FAERS Safety Report 26094700 (Version 1)
Quarter: 2025Q4

REPORT INFORMATION
  Report Type: Other
  Country: CH (occurrence: CH)
  Receive Date: 20251126
  Receipt Date: 20251126
  Transmission Date: 20260118
  Serious: Yes (Hospitalization, Other)
  Sender: KOWA PHARM
  Company Number: None

PATIENT

DRUGS (14)
  1. PITAVASTATIN CALCIUM [Interacting]
     Active Substance: PITAVASTATIN CALCIUM
     Indication: Product used for unknown indication
     Dosage: 4 MILLIGRAM, QD
     Route: 048
  2. XARELTO [Interacting]
     Active Substance: RIVAROXABAN
     Indication: Product used for unknown indication
     Dosage: 20 MG
     Route: 048
  3. NOVALGIN (METAMIZOLE SODIUM) [Interacting]
     Active Substance: METAMIZOLE SODIUM
     Indication: Product used for unknown indication
     Dosage: 500 MG, PRN
     Route: 048
  4. GEMCITABINE [Suspect]
     Active Substance: GEMCITABINE
     Indication: Breast cancer female
     Dosage: 1200 MILLIGRAM, TOTAL
     Route: 042
     Dates: start: 20250821, end: 20250821
  5. RAMIPRIL [Interacting]
     Active Substance: RAMIPRIL
     Indication: Product used for unknown indication
     Dosage: 2.5 MILLIGRAM, QD
     Route: 048
  6. VENLAFAXINE HYDROCHLORIDE [Interacting]
     Active Substance: VENLAFAXINE HYDROCHLORIDE
     Indication: Product used for unknown indication
     Dosage: 75 MILLIGRAM, QD
     Route: 048
  7. CARBOPLATIN [Suspect]
     Active Substance: CARBOPLATIN
     Indication: Breast cancer
     Dosage: 600 MILLIGRAM, TOTAL
     Route: 065
     Dates: start: 20250821, end: 20250821
  8. PANTOPRAZOLE [Interacting]
     Active Substance: PANTOPRAZOLE
     Indication: Product used for unknown indication
     Dosage: 40 MG, PRN
     Route: 048
  9. TORSEMIDE [Interacting]
     Active Substance: TORSEMIDE
     Indication: Product used for unknown indication
     Dosage: 5 MILLIGRAM, QD
     Route: 048
  10. DAPAGLIFLOZIN [Concomitant]
     Active Substance: DAPAGLIFLOZIN
     Indication: Product used for unknown indication
     Dosage: UNK
     Route: 065
  11. METOCLOPRAMIDE HYDROCHLORIDE [Concomitant]
     Active Substance: METOCLOPRAMIDE HYDROCHLORIDE
     Indication: Product used for unknown indication
     Dosage: UNK
     Route: 065
  12. CALCIUM\CHOLECALCIFEROL [Concomitant]
     Active Substance: CALCIUM\CHOLECALCIFEROL
     Indication: Product used for unknown indication
     Dosage: UNK
     Route: 065
  13. BISOPROLOL [Concomitant]
     Active Substance: BISOPROLOL
     Indication: Product used for unknown indication
     Dosage: UNK
     Route: 065
  14. DEXAMETHASONE [Concomitant]
     Active Substance: DEXAMETHASONE
     Indication: Product used for unknown indication
     Dosage: UNK
     Route: 065
     Dates: start: 202508

REACTIONS (9)
  - Pancytopenia [Unknown]
  - Mucosal inflammation [Recovering/Resolving]
  - Thrombocytopenia [Unknown]
  - Neutropenia [Unknown]
  - Diarrhoea [Unknown]
  - Anaemia [Unknown]
  - Hypokalaemia [Unknown]
  - Hepatic function abnormal [Unknown]
  - Drug interaction [Unknown]

NARRATIVE: CASE EVENT DATE: 20250821
